FAERS Safety Report 4958439-1 (Version None)
Quarter: 2006Q1

REPORT INFORMATION
  Report Type: 
  Country: None (occurrence: None)
  Receive Date: 20060330
  Receipt Date: 20060316
  Transmission Date: 20060701
  Serious: Yes (Hospitalization)
  Sender: FDA-Public Use
  Company Number: HQWYE454523JAN06

PATIENT
  Sex: Female
  Weight: 41 kg

DRUGS (5)
  1. ENBREL [Suspect]
     Indication: RHEUMATOID ARTHRITIS
     Route: 058
     Dates: start: 20050914, end: 20051031
  2. ISCOTIN [Concomitant]
     Indication: ANTIBIOTIC PROPHYLAXIS
     Route: 048
     Dates: start: 20050915, end: 20051101
  3. VOLTAREN [Concomitant]
     Indication: RHEUMATOID ARTHRITIS
     Route: 048
     Dates: start: 20050914, end: 20051101
  4. VOLTAREN [Concomitant]
     Route: 050
     Dates: start: 20050914, end: 20051101
  5. CYTOTEC [Concomitant]
     Indication: DRUG USE FOR UNKNOWN INDICATION
     Route: 048
     Dates: start: 20050914, end: 20051101

REACTIONS (1)
  - NEPHROTIC SYNDROME [None]
